FAERS Safety Report 9819272 (Version 1)
Quarter: 2014Q1

REPORT INFORMATION
  Report Type: Spontaneous
  Country: US (occurrence: US)
  Receive Date: 20140115
  Receipt Date: 20140115
  Transmission Date: 20141002
  Serious: Yes (Other)
  Sender: FDA-Public Use
  Company Number: US-ENDO PHARMACEUTICALS INC.-OPCR20140021

PATIENT
  Sex: Male

DRUGS (1)
  1. OPANA ER 40MG [Suspect]
     Indication: DRUG ABUSE
     Dosage: 40MG
     Route: 045

REACTIONS (4)
  - Airway burns [Not Recovered/Not Resolved]
  - Drug abuse [Recovered/Resolved]
  - Incorrect route of drug administration [Recovered/Resolved]
  - Wrong technique in drug usage process [Recovered/Resolved]
